FAERS Safety Report 13285412 (Version 2)
Quarter: 2017Q1

REPORT INFORMATION
  Report Type: Spontaneous
  Country: US (occurrence: US)
  Receive Date: 20170301
  Receipt Date: 20170329
  Transmission Date: 20170428
  Serious: No
  Sender: FDA-Public Use
  Company Number: US-BRISTOL-MYERS SQUIBB COMPANY-BMS-2017-015798

PATIENT
  Age: 58 Year
  Sex: Female

DRUGS (1)
  1. SPRYCEL [Suspect]
     Active Substance: DASATINIB
     Indication: WHITE BLOOD CELL COUNT INCREASED
     Dosage: 100 MG, DAILY
     Route: 048
     Dates: start: 20161010

REACTIONS (4)
  - Musculoskeletal pain [Unknown]
  - Pain in extremity [Unknown]
  - Arthralgia [Unknown]
  - Product use issue [Unknown]

NARRATIVE: CASE EVENT DATE: 20161120
